FAERS Safety Report 6617792-3 (Version None)
Quarter: 2010Q1

REPORT INFORMATION
  Report Type: 
  Country: None (occurrence: None)
  Receive Date: 20100308
  Receipt Date: 20100226
  Transmission Date: 20100710
  Serious: Yes (Hospitalization)
  Sender: FDA-Public Use
  Company Number: US-AMGEN-QUU390534

PATIENT
  Sex: Female
  Weight: 116.2 kg

DRUGS (13)
  1. ENBREL [Suspect]
     Indication: PSORIASIS
     Route: 058
     Dates: start: 20040114
  2. METFORMIN HYDROCHLORIDE [Concomitant]
     Dates: start: 20090219
  3. ACTOS [Concomitant]
     Dates: start: 20090219
  4. NOVOLOG [Concomitant]
     Dates: start: 20090219
  5. LISINOPRIL [Concomitant]
     Dates: start: 20090219
  6. DICLOFENAC [Concomitant]
     Dates: start: 20090219
  7. GABAPENTIN [Concomitant]
     Dates: start: 20080909
  8. EVISTA [Concomitant]
     Dates: start: 20090521
  9. TIZANIDINE HCL [Concomitant]
     Dates: start: 20090227
  10. BYETTA [Concomitant]
     Dates: start: 20091103
  11. ADVAIR DISKUS 100/50 [Concomitant]
     Dates: start: 20090715
  12. PRO-AIR (PARKE DAVIS) [Concomitant]
     Dates: start: 20090715
  13. COMBIVENT [Concomitant]
     Dates: start: 20090715

REACTIONS (2)
  - ASTHMA [None]
  - DRUG INEFFECTIVE [None]
